FAERS Safety Report 15279152 (Version 1)
Quarter: 2018Q3

REPORT INFORMATION
  Report Type: Spontaneous
  Country: US (occurrence: US)
  Receive Date: 20180730
  Receipt Date: 20180730
  Transmission Date: 20181010
  Serious: Yes (Disabling)
  Sender: FDA-Public Use
  Company Number: None

PATIENT
  Age: 38 Year
  Sex: Male
  Weight: 83.25 kg

DRUGS (10)
  1. ALLEGRA [Concomitant]
     Active Substance: FEXOFENADINE HYDROCHLORIDE
  2. ARALAST [Concomitant]
     Active Substance: .ALPHA.1-PROTEINASE INHIBITOR HUMAN
  3. FOLIC ACID. [Concomitant]
     Active Substance: FOLIC ACID
  4. SPIRIVA [Concomitant]
     Active Substance: TIOTROPIUM BROMIDE MONOHYDRATE
  5. BUPRENORPHINE AND NALOXONE SUBLINGUAL FILM 8 MG/2 MG [Suspect]
     Active Substance: BUPRENORPHINE\NALOXONE
     Dosage: ORAL; 1 SUBLINGUAL FILM; 3 TIMES A DAY?
     Route: 048
     Dates: start: 20180725, end: 20180730
  6. ST JOHN^S WORT [Concomitant]
     Active Substance: ST. JOHN^S WORT
  7. ALBUTEROL. [Concomitant]
     Active Substance: ALBUTEROL
  8. ACIPHEX [Concomitant]
     Active Substance: RABEPRAZOLE SODIUM
  9. PHENERGAN [Concomitant]
     Active Substance: PROMETHAZINE HYDROCHLORIDE
  10. BREO ELLIPTA [Concomitant]
     Active Substance: FLUTICASONE FUROATE\VILANTEROL TRIFENATATE

REACTIONS (5)
  - Serotonin syndrome [None]
  - Recalled product [None]
  - Gastrointestinal pain [None]
  - Product substitution issue [None]
  - Constipation [None]

NARRATIVE: CASE EVENT DATE: 20180730
